FAERS Safety Report 15480304 (Version 6)
Quarter: 2022Q1

REPORT INFORMATION
  Report Type: Spontaneous
  Country: BR (occurrence: BR)
  Receive Date: 20181009
  Receipt Date: 20220202
  Transmission Date: 20220423
  Serious: Yes (Hospitalization, Other)
  Sender: FDA-Public Use
  Company Number: BR-ALLERGAN-1848420US

PATIENT
  Sex: Female
  Weight: 59 kg

DRUGS (11)
  1. RISEDRONATE SODIUM [Suspect]
     Active Substance: RISEDRONATE SODIUM
     Indication: Osteoporosis
     Dosage: 150 MG, Q MONTH
     Route: 048
     Dates: start: 20180928, end: 20180928
  2. ALENDRONATE SODIUM [Suspect]
     Active Substance: ALENDRONATE SODIUM
     Indication: Osteoporosis
     Dosage: 1 DF, PER WEEK
     Route: 048
     Dates: start: 20180928
  3. OSCAL D [Concomitant]
     Active Substance: CALCIUM CARBONATE\CHOLECALCIFEROL
     Indication: Osteoporosis
     Dosage: 1 DF (500 MG + 400 IU ), Q12H
     Route: 048
     Dates: start: 20180913
  4. FLUXOCOR [Concomitant]
     Indication: Hypertension
     Dosage: 20 MG, QD
     Route: 048
     Dates: start: 2016, end: 2018
  5. LIPITOR [Concomitant]
     Active Substance: ATORVASTATIN CALCIUM
     Indication: Blood cholesterol
     Dosage: 10 MG, QD
     Route: 048
     Dates: start: 2015
  6. SYNTHROID [Concomitant]
     Active Substance: LEVOTHYROXINE SODIUM
     Indication: Hypothyroidism
     Dosage: 120 ?G, DURING FASTING
     Route: 048
     Dates: start: 2013, end: 201808
  7. SYNTHROID [Concomitant]
     Active Substance: LEVOTHYROXINE SODIUM
     Dosage: 100 ?G, DURING FASTING
     Route: 048
     Dates: start: 201808
  8. OLMESARTAN MEDOXOMIL [Concomitant]
     Active Substance: OLMESARTAN MEDOXOMIL
     Indication: Product used for unknown indication
     Route: 065
  9. LIVALO [Concomitant]
     Active Substance: PITAVASTATIN CALCIUM
     Indication: Product used for unknown indication
     Route: 065
  10. LOSARTAN POTASSIUM [Concomitant]
     Active Substance: LOSARTAN POTASSIUM
     Indication: Product used for unknown indication
     Route: 065
  11. METOPROLOL SUCCINATE [Concomitant]
     Active Substance: METOPROLOL SUCCINATE
     Indication: Product used for unknown indication
     Dosage: UNK
     Route: 065
     Dates: start: 2018

REACTIONS (18)
  - Movement disorder [Recovered/Resolved]
  - Retching [Recovered/Resolved]
  - Abdominal tenderness [Recovered/Resolved]
  - Decreased appetite [Recovered/Resolved]
  - Productive cough [Recovered/Resolved]
  - Abdominal discomfort [Recovered/Resolved]
  - Throat irritation [Not Recovered/Not Resolved]
  - Abdominal distension [Recovered/Resolved]
  - Muscle spasms [Recovered/Resolved]
  - Vomiting [Recovered/Resolved]
  - Cough [Recovered/Resolved]
  - Sinusitis [Not Recovered/Not Resolved]
  - Rhinitis [Unknown]
  - Nausea [Recovered/Resolved]
  - Diarrhoea [Recovered/Resolved]
  - Abdominal pain [Recovered/Resolved]
  - Influenza [Not Recovered/Not Resolved]
  - Headache [Unknown]

NARRATIVE: CASE EVENT DATE: 20180928
